FAERS Safety Report 6091251-1 (Version None)
Quarter: 2009Q1

REPORT INFORMATION
  Report Type: 
  Country: None (occurrence: None)
  Receive Date: 20090225
  Receipt Date: 20090225
  Transmission Date: 20090719
  Serious: Yes (Hospitalization, Disabling, Other)
  Sender: FDA-Public Use
  Company Number: US-ABBOTT-09P-163-0502999-00

PATIENT
  Sex: Female
  Weight: 83.536 kg

DRUGS (18)
  1. HUMIRA [Suspect]
     Indication: CROHN'S DISEASE
     Route: 048
     Dates: start: 20071201
  2. PREDNISONE [Concomitant]
     Indication: CROHN'S DISEASE
     Route: 048
     Dates: start: 20070101
  3. ALPRAZOLAM [Concomitant]
     Indication: ANXIETY
     Route: 048
  4. LOMOTIL [Concomitant]
     Indication: DIARRHOEA
     Route: 048
  5. LOMOTIL [Concomitant]
     Indication: CROHN'S DISEASE
  6. CHLORDIAZEPOXIDE [Concomitant]
     Indication: ANXIETY
     Route: 048
  7. AMBIEN [Concomitant]
     Indication: INSOMNIA
     Dosage: ONE DAILY AS NEEDED
     Route: 048
  8. PROTONIX [Concomitant]
     Indication: GASTROOESOPHAGEAL REFLUX DISEASE
     Route: 048
  9. ZANTAC [Concomitant]
     Indication: GASTROOESOPHAGEAL REFLUX DISEASE
     Route: 048
  10. FOLIC ACID [Concomitant]
     Indication: DRUG USE FOR UNKNOWN INDICATION
     Route: 048
  11. ATENOLOL [Concomitant]
     Indication: HYPERTENSION
     Route: 048
  12. VITAMIN B-12 [Concomitant]
     Indication: CROHN'S DISEASE
     Route: 058
  13. VITAMIN D [Concomitant]
     Indication: CROHN'S DISEASE
     Route: 048
  14. NITRO-BID [Concomitant]
     Indication: HYPOAESTHESIA
     Route: 061
  15. NITRO-BID [Concomitant]
     Indication: ANGIOPATHY
  16. FLINTSTONES MULTIPLE VITAMINS [Concomitant]
     Indication: VITAMIN SUPPLEMENTATION
     Route: 048
  17. CALCIUM + VITAMIN D [Concomitant]
     Indication: VITAMIN SUPPLEMENTATION
     Route: 048
  18. MIRALAX [Concomitant]
     Indication: CONSTIPATION
     Route: 048

REACTIONS (13)
  - ABDOMINAL DISTENSION [None]
  - ABDOMINAL PAIN [None]
  - ABSCESS [None]
  - ADHESION [None]
  - ASTHENIA [None]
  - COLECTOMY [None]
  - DEPRESSION [None]
  - NAUSEA [None]
  - OVARIAN CYST [None]
  - POST PROCEDURAL INFECTION [None]
  - SPONDYLITIS [None]
  - VOLVULUS [None]
  - VOMITING [None]
